FAERS Safety Report 24605142 (Version 1)
Quarter: 2024Q4

REPORT INFORMATION
  Report Type: Spontaneous
  Country: US (occurrence: US)
  Receive Date: 20241111
  Receipt Date: 20241111
  Transmission Date: 20250115
  Serious: No
  Sender: PARATEK PHARMACEUTICALS
  Company Number: US-PARATEK PHARMACEUTICALS, INC.-2024PTK00892

PATIENT
  Age: 22 Year
  Sex: Female

DRUGS (4)
  1. OMADACYCLINE [Suspect]
     Active Substance: OMADACYCLINE
     Dosage: UNK
  2. AMIKACIN SULFATE [Concomitant]
     Active Substance: AMIKACIN SULFATE
  3. AZITHROMYCIN [Concomitant]
     Active Substance: AZITHROMYCIN
     Route: 048
  4. LINEZOLID [Concomitant]
     Active Substance: LINEZOLID
     Dosage: UNK

REACTIONS (1)
  - Drug ineffective [Not Recovered/Not Resolved]
